FAERS Safety Report 10591792 (Version 3)
Quarter: 2014Q4

REPORT INFORMATION
  Report Type: Report from Study
  Country: AU (occurrence: AU)
  Receive Date: 20141118
  Receipt Date: 20141120
  Transmission Date: 20150529
  Serious: Yes (Other)
  Sender: FDA-Public Use
  Company Number: AU-ROCHE-1476279

PATIENT
  Age: 62 Year
  Sex: Female

DRUGS (1)
  1. ACTEMRA [Suspect]
     Active Substance: TOCILIZUMAB
     Indication: RHEUMATOID ARTHRITIS
     Route: 042
     Dates: start: 20130409

REACTIONS (9)
  - Nausea [Not Recovered/Not Resolved]
  - Fatigue [Unknown]
  - Pyrexia [Unknown]
  - Malaise [Recovered/Resolved]
  - Rash generalised [Unknown]
  - Diarrhoea [Recovered/Resolved]
  - Vomiting [Recovered/Resolved]
  - Malaise [Recovering/Resolving]
  - Hypertension [Unknown]

NARRATIVE: CASE EVENT DATE: 201410
